FAERS Safety Report 10283862 (Version 2)
Quarter: 2014Q4

REPORT INFORMATION
  Report Type: Spontaneous
  Country: GB (occurrence: GB)
  Receive Date: 20140708
  Receipt Date: 20141216
  Transmission Date: 20150528
  Serious: Yes (Disabling, Other)
  Sender: FDA-Public Use
  Company Number: GB-WATSON-2014-14280

PATIENT
  Age: 61 Year
  Sex: Female
  Weight: 59 kg

DRUGS (6)
  1. SIMVASTATIN (UNKNOWN) [Suspect]
     Active Substance: SIMVASTATIN
     Indication: HYPERCHOLESTEROLAEMIA
     Dosage: 40 MG, UNKNOWN
     Route: 048
  2. ADCAL                              /07357001/ [Concomitant]
     Indication: PRODUCT USED FOR UNKNOWN INDICATION
     Dosage: UNK
     Route: 065
  3. GABAPENTIN. [Concomitant]
     Active Substance: GABAPENTIN
     Indication: PRODUCT USED FOR UNKNOWN INDICATION
     Dosage: UNK
     Route: 065
  4. SIMVASTATIN (UNKNOWN) [Suspect]
     Active Substance: SIMVASTATIN
     Dosage: 20 MG, UNKNOWN
     Route: 048
  5. MORPHINE SULPHATE [Concomitant]
     Active Substance: MORPHINE SULFATE
     Indication: PRODUCT USED FOR UNKNOWN INDICATION
     Dosage: UNK
     Route: 065
  6. ZOPICLONE [Concomitant]
     Active Substance: ZOPICLONE
     Indication: PRODUCT USED FOR UNKNOWN INDICATION
     Dosage: UNK
     Route: 065

REACTIONS (1)
  - Autonomic nervous system imbalance [Not Recovered/Not Resolved]

NARRATIVE: CASE EVENT DATE: 2010
